FAERS Safety Report 9720206 (Version 1)
Quarter: 2013Q4

REPORT INFORMATION
  Report Type: Report from Study
  Country: US (occurrence: US)
  Receive Date: 20131129
  Receipt Date: 20131129
  Transmission Date: 20140711
  Serious: Yes (Hospitalization, Other)
  Sender: FDA-Public Use
  Company Number: US-ROCHE-1309728

PATIENT
  Age: 59 Year
  Sex: Male

DRUGS (5)
  1. XOLAIR [Suspect]
     Indication: ASTHMA
     Route: 065
  2. REGLAN [Concomitant]
     Dosage: AC AND HS
     Route: 048
  3. ADVAIR DISKUS [Concomitant]
     Dosage: 500/50 MCG 1 PUFF BID
     Route: 065
  4. METHOTREXATE [Concomitant]
     Route: 065
  5. PREDNISONE [Concomitant]
     Dosage: AS DIRECTED
     Route: 048

REACTIONS (25)
  - Asthma [Unknown]
  - Wheezing [Unknown]
  - Dyspnoea [Unknown]
  - Productive cough [Unknown]
  - Exercise tolerance decreased [Unknown]
  - Dysphonia [Unknown]
  - Cough [Unknown]
  - Skull fracture [Unknown]
  - Dizziness [Unknown]
  - Fatigue [Unknown]
  - Chills [Unknown]
  - Gastrooesophageal reflux disease [Unknown]
  - Hiccups [Unknown]
  - Hypogonadism [Unknown]
  - Bronchial hyperreactivity [Unknown]
  - Hypertension [Unknown]
  - Oedema mucosal [Unknown]
  - Nasal oedema [Not Recovered/Not Resolved]
  - Mucosal discolouration [Unknown]
  - Upper-airway cough syndrome [Unknown]
  - Drug ineffective [Not Recovered/Not Resolved]
  - Chest discomfort [Unknown]
  - Night sweats [Unknown]
  - Haemorrhage [Unknown]
  - Middle insomnia [Unknown]
